FAERS Safety Report 21490582 (Version 5)
Quarter: 2022Q4

REPORT INFORMATION
  Report Type: Spontaneous
  Country: US (occurrence: US)
  Receive Date: 20221021
  Receipt Date: 20221215
  Transmission Date: 20230112
  Serious: Yes (Other)
  Sender: FDA-Public Use
  Company Number: US-NOVOPROD-968892

PATIENT
  Age: 76 Year
  Sex: Female

DRUGS (1)
  1. NOVOLOG MIX 70/30 [Suspect]
     Active Substance: INSULIN ASPART
     Indication: Type 2 diabetes mellitus
     Dosage: 52 IU, BID(MORNING AND NIGHT)
     Route: 058
     Dates: start: 1996

REACTIONS (3)
  - Cataract [Not Recovered/Not Resolved]
  - Blood glucose increased [Unknown]
  - Hearing aid user [Unknown]

NARRATIVE: CASE EVENT DATE: 20200101
